FAERS Safety Report 16777055 (Version 4)
Quarter: 2019Q4

REPORT INFORMATION
  Report Type: Report from Study
  Country: GB (occurrence: GB)
  Receive Date: 20190905
  Receipt Date: 20191128
  Transmission Date: 20200122
  Serious: Yes (Hospitalization)
  Sender: FDA-Public Use
  Company Number: PHHY2019GB203746

PATIENT
  Age: 68 Year
  Sex: Female
  Weight: 68.4 kg

DRUGS (4)
  1. KISQALI [Suspect]
     Active Substance: RIBOCICLIB
     Indication: BREAST CANCER METASTATIC
     Dosage: 600 MG, UNK
     Route: 048
     Dates: start: 20190504, end: 20190823
  2. DALTEPARIN [Concomitant]
     Active Substance: DALTEPARIN
     Indication: THROMBOSIS PROPHYLAXIS
     Dosage: 5000 IU, UNK
     Route: 065
     Dates: start: 20190823, end: 20190902
  3. LETROZOLE. [Concomitant]
     Active Substance: LETROZOLE
     Indication: BREAST CANCER METASTATIC
     Dosage: 2.5 MG, QD
     Route: 065
     Dates: start: 20190504
  4. KISQALI [Suspect]
     Active Substance: RIBOCICLIB
     Dosage: 600 MG, UNK
     Route: 048
     Dates: start: 20190921

REACTIONS (21)
  - Red cell distribution width increased [Unknown]
  - Eosinophil count decreased [Unknown]
  - Lymphocyte count decreased [Unknown]
  - Nausea [Recovered/Resolved]
  - Activated partial thromboplastin time ratio decreased [Unknown]
  - Red blood cell count decreased [Unknown]
  - Dehydration [Recovered/Resolved]
  - C-reactive protein increased [Unknown]
  - Neutrophil count decreased [Unknown]
  - Sepsis [Recovered/Resolved]
  - White blood cell count increased [Unknown]
  - Adjusted calcium decreased [Unknown]
  - Blood calcium decreased [Unknown]
  - Vomiting [Recovered/Resolved]
  - Platelet count increased [Unknown]
  - Pyrexia [Not Recovered/Not Resolved]
  - Activated partial thromboplastin time shortened [Unknown]
  - White blood cell count decreased [Unknown]
  - Protein total decreased [Unknown]
  - Haematocrit decreased [Unknown]
  - Platelet count decreased [Unknown]

NARRATIVE: CASE EVENT DATE: 20190823
